FAERS Safety Report 8067200-3 (Version None)
Quarter: 2012Q1

REPORT INFORMATION
  Report Type: 
  Country: None (occurrence: None)
  Receive Date: 20120124
  Receipt Date: 20120120
  Transmission Date: 20120608
  Serious: Yes (Hospitalization)
  Sender: FDA-Public Use
  Company Number: US-GLAXOSMITHKLINE-A0961607A

PATIENT
  Age: 55 Year
  Sex: Male

DRUGS (4)
  1. COUMADIN [Concomitant]
  2. ARIXTRA [Suspect]
     Indication: DEEP VEIN THROMBOSIS
     Dosage: 10MG PER DAY
     Route: 058
     Dates: start: 20111201
  3. LOVENOX [Concomitant]
  4. UNKNOWN [Concomitant]

REACTIONS (4)
  - CEREBROVASCULAR ACCIDENT [None]
  - CHEST PAIN [None]
  - DYSPNOEA [None]
  - DRUG LEVEL BELOW THERAPEUTIC [None]
